FAERS Safety Report 8817968 (Version 1)
Quarter: 2012Q4

REPORT INFORMATION
  Report Type: 
  Country: AU (occurrence: AU)
  Receive Date: 20121001
  Receipt Date: 20121001
  Transmission Date: 20130627
  Serious: Yes (Death)
  Sender: FDA-Public Use
  Company Number: AU-ASTRAZENECA-2012SE74445

PATIENT
  Age: 80 Year
  Sex: Male

DRUGS (7)
  1. PROPOFOL [Suspect]
     Dosage: 150 DAILY
     Route: 042
     Dates: start: 20120723, end: 20120723
  2. FENTANYL [Suspect]
     Route: 065
     Dates: start: 20120723, end: 20120723
  3. MIDAZOLAM [Suspect]
     Route: 065
     Dates: start: 20120723, end: 20120723
  4. ROCURONIUM BROMIDE [Suspect]
     Route: 065
     Dates: start: 20120723, end: 20120723
  5. DESVENLAFAXINE [Concomitant]
  6. RAMIPRIL [Concomitant]
  7. SIMVASTATIN [Concomitant]

REACTIONS (4)
  - Anaphylactic reaction [Fatal]
  - Circulatory collapse [Fatal]
  - Cardiac arrest [Fatal]
  - Tryptase increased [Fatal]
